FAERS Safety Report 5019846-4 (Version None)
Quarter: 2006Q2

REPORT INFORMATION
  Report Type: 
  Country: None (occurrence: None)
  Receive Date: 20060601
  Receipt Date: 20060522
  Transmission Date: 20061013
  Serious: Yes (Hospitalization)
  Sender: FDA-Public Use
  Company Number: 2006067056

PATIENT
  Age: 61 Year
  Sex: Female

DRUGS (10)
  1. ALPRAZOLAM [Suspect]
     Indication: SOMATOFORM DISORDER
     Dosage: 0.75 MG ORAL
     Route: 048
  2. GLADEM (SERTRALINE) [Suspect]
     Indication: SOMATOFORM DISORDER
     Dosage: 50 MG
     Dates: start: 20060413, end: 20060420
  3. REMERON [Suspect]
     Indication: SOMATOFORM DISORDER
     Dosage: 15 MG
     Dates: start: 20060420, end: 20060420
  4. RESPICUR - SLOW RELEASE (THEOPHYLLINE) [Concomitant]
  5. SPIRIVA [Concomitant]
  6. CONCOR COR (BISOPROLOL) [Concomitant]
  7. PANTOLOC ^BYK^ (PANTOPRAZOLE SODIUM) [Concomitant]
  8. OXIS (FORMOTEROL) [Concomitant]
  9. PULMICORT [Concomitant]
  10. BERODUAL (FENOTEROL HYDROBROMIDE, IPRATROPIUM BROMIDE) [Concomitant]

REACTIONS (3)
  - DIZZINESS [None]
  - INSOMNIA [None]
  - MYALGIA [None]
